FAERS Safety Report 8360692-1 (Version None)
Quarter: 2012Q2

REPORT INFORMATION
  Report Type: 
  Country: None (occurrence: None)
  Receive Date: 20120515
  Receipt Date: 20120508
  Transmission Date: 20120825
  Serious: Yes (Hospitalization)
  Sender: FDA-Public Use
  Company Number: US-ACTELION-A-NJ2012-65390

PATIENT

DRUGS (7)
  1. PLAVIX [Concomitant]
  2. ASPIRIN [Concomitant]
  3. CALCIUM CHANNEL BLOCKERS [Concomitant]
  4. CELLCEPT [Concomitant]
  5. TRACLEER [Suspect]
     Indication: PULMONARY ARTERIAL HYPERTENSION
     Dosage: UNK
     Route: 048
     Dates: start: 20100604
  6. SILDENAFIL [Concomitant]
  7. PENICILLIN [Suspect]

REACTIONS (4)
  - TONGUE HAEMORRHAGE [None]
  - MALAISE [None]
  - SCLERODERMA [None]
  - DEHYDRATION [None]
